FAERS Safety Report 6968863-3 (Version None)
Quarter: 2010Q3

REPORT INFORMATION
  Report Type: 
  Country: None (occurrence: None)
  Receive Date: 20100901
  Receipt Date: 20100901
  Transmission Date: 20110219
  Serious: Yes (Other)
  Sender: FDA-Public Use
  Company Number: 016

PATIENT
  Age: 58 Year
  Sex: Female

DRUGS (1)
  1. DR. FRANK'S JOINT + MUSCLE PAIN RELIEF [Suspect]
     Indication: ARTHRALGIA
     Dosage: 4 SPRAYS TWICE/DAY

REACTIONS (3)
  - HYPERSENSITIVITY [None]
  - OSTEITIS [None]
  - PHARYNGEAL OEDEMA [None]
